FAERS Safety Report 12455991 (Version 7)
Quarter: 2017Q1

REPORT INFORMATION
  Report Type: Report from Study
  Country: FR (occurrence: FR)
  Receive Date: 20160610
  Receipt Date: 20170303
  Transmission Date: 20170428
  Serious: Yes (Death, Life-Threatening, Hospitalization)
  Sender: FDA-Public Use
  Company Number: FR-CELGENEUS-FRA-2016061204

PATIENT
  Age: 78 Year
  Sex: Female
  Weight: 65.9 kg

DRUGS (17)
  1. ZELITREX [Concomitant]
     Active Substance: VALACYCLOVIR HYDROCHLORIDE
     Indication: INFECTION PROPHYLAXIS
     Dosage: 250MG
     Route: 048
     Dates: start: 20160503
  2. ARANESP [Concomitant]
     Active Substance: DARBEPOETIN ALFA
     Route: 058
     Dates: start: 20160411, end: 20160425
  3. ATROVENT [Concomitant]
     Active Substance: IPRATROPIUM BROMIDE
     Indication: ACUTE PULMONARY OEDEMA
     Dosage: 1 OTHER
     Route: 055
     Dates: start: 20160427, end: 20160427
  4. LANTUS [Concomitant]
     Active Substance: INSULIN GLARGINE
     Indication: DIABETES MELLITUS
     Dosage: 8IU
     Route: 058
     Dates: start: 20150822, end: 20160502
  5. CALCIPARINE [Concomitant]
     Active Substance: HEPARIN CALCIUM
     Indication: THROMBOSIS PROPHYLAXIS
     Dosage: .2 MILLILITER
     Route: 058
     Dates: start: 20160410, end: 20160414
  6. INEXIUM [Concomitant]
     Active Substance: ESOMEPRAZOLE
     Dosage: 20MG
     Route: 048
     Dates: start: 20150706, end: 20160502
  7. ASPIRIN. [Concomitant]
     Active Substance: ASPIRIN
     Indication: THROMBOSIS PROPHYLAXIS
     Route: 065
     Dates: start: 20160411
  8. INSULINE NOVORAPID [Concomitant]
     Indication: DIABETES MELLITUS
     Route: 058
     Dates: start: 20150822
  9. DEXAMETHASONE. [Suspect]
     Active Substance: DEXAMETHASONE
     Indication: PLASMA CELL MYELOMA
     Dosage: 20MG
     Route: 048
     Dates: start: 20160408, end: 20160429
  10. CC-4047 [Suspect]
     Active Substance: POMALIDOMIDE
     Indication: PLASMA CELL MYELOMA
     Dosage: 4MG
     Route: 048
     Dates: start: 20160408, end: 20160428
  11. ORACILLINE [Concomitant]
     Active Substance: PENICILLIN V
     Indication: INFECTION PROPHYLAXIS
     Dosage: 2IU
     Route: 048
     Dates: start: 20160415
  12. PENTACARINAT [Concomitant]
     Active Substance: PENTAMIDINE ISETHIONATE
     Indication: PROPHYLAXIS
     Dosage: 1 BOTTLE?1 DF
     Route: 048
     Dates: start: 20160411
  13. AMLOR [Concomitant]
     Active Substance: AMLODIPINE BESYLATE
     Indication: PROPHYLAXIS
     Dosage: 10MG
     Route: 048
     Dates: start: 201503
  14. CALCIPARINE [Concomitant]
     Active Substance: HEPARIN CALCIUM
     Dosage: 1 MILLILITER
     Route: 058
     Dates: start: 20160415, end: 20160419
  15. BRICANYL [Concomitant]
     Active Substance: TERBUTALINE SULFATE
     Indication: ACUTE PULMONARY OEDEMA
     Dosage: 1 OTHER
     Route: 055
     Dates: start: 20160427, end: 20160427
  16. INEXIUM [Concomitant]
     Active Substance: ESOMEPRAZOLE
     Indication: PROPHYLAXIS
     Dosage: 40MG
     Route: 048
     Dates: start: 20160503
  17. ARANESP [Concomitant]
     Active Substance: DARBEPOETIN ALFA
     Indication: ANAEMIA
     Dosage: 150MICROGM
     Route: 058
     Dates: start: 20160502

REACTIONS (2)
  - Cerebral haemorrhage [Fatal]
  - Thrombocytopenia [Not Recovered/Not Resolved]

NARRATIVE: CASE EVENT DATE: 20160517
